FAERS Safety Report 4302132-5 (Version None)
Quarter: 2004Q1

REPORT INFORMATION
  Report Type: 
  Country: None (occurrence: None)
  Receive Date: 20040220
  Receipt Date: 20040206
  Transmission Date: 20041129
  Serious: Yes (Other)
  Sender: FDA-Public Use
  Company Number: FR-SHR-04-020920

PATIENT
  Age: 76 Year
  Sex: Female

DRUGS (1)
  1. FLUDARABINE + CYCLOPHOSPHAMIDE (FLUDARABINE PHOSPHATE) [Suspect]
     Indication: CHRONIC LYMPHOCYTIC LEUKAEMIA
     Dosage: 7 TAB(S), 1X/DAY, ORAL
     Route: 048
     Dates: start: 20030101, end: 20030101

REACTIONS (3)
  - DERMATITIS ALLERGIC [None]
  - DERMATITIS BULLOUS [None]
  - TOXIC SKIN ERUPTION [None]
